FAERS Safety Report 15725581 (Version 1)
Quarter: 2018Q4

REPORT INFORMATION
  Report Type: Spontaneous
  Country: NO (occurrence: NO)
  Receive Date: 20181215
  Receipt Date: 20181215
  Transmission Date: 20190205
  Serious: Yes (Life-Threatening)
  Sender: FDA-Public Use
  Company Number: NO-ACCORD-096398

PATIENT
  Age: 66 Year
  Sex: Male

DRUGS (8)
  1. PROPOFOL. [Concomitant]
     Active Substance: PROPOFOL
     Indication: ANAESTHESIA PROCEDURE
     Route: 040
     Dates: start: 20171019, end: 20171019
  2. CISATRACURIUM/CISATRACURIUM BESILATE [Suspect]
     Active Substance: CISATRACURIUM BESYLATE
     Indication: ANAESTHESIA PROCEDURE
     Dosage: UNK
     Route: 040
     Dates: start: 20171019, end: 20171019
  3. EPHEDRINE. [Concomitant]
     Active Substance: EPHEDRINE
     Indication: ANAESTHESIA PROCEDURE
     Dates: start: 20171019, end: 20171019
  4. FENTANYL. [Concomitant]
     Active Substance: FENTANYL
     Indication: ANAESTHESIA PROCEDURE
     Route: 040
     Dates: start: 20171019, end: 20171019
  5. MIDAZOLAM [Concomitant]
     Active Substance: MIDAZOLAM HYDROCHLORIDE
     Indication: ANAESTHESIA PROCEDURE
     Route: 040
     Dates: start: 20171019, end: 20171019
  6. ATROPINE. [Concomitant]
     Active Substance: ATROPINE
     Indication: ANAESTHESIA PROCEDURE
     Dates: start: 20171019, end: 20171019
  7. CEFALOTIN [Suspect]
     Active Substance: CEPHALOTHIN
     Indication: ANAESTHESIA PROCEDURE
     Route: 040
     Dates: start: 20171019, end: 20171019
  8. REMIFENTANIL/REMIFENTANIL HYDROCHLORIDE [Concomitant]
     Indication: ANAESTHESIA PROCEDURE
     Route: 040
     Dates: start: 20171019, end: 20171019

REACTIONS (1)
  - Anaphylactic shock [Recovered/Resolved]

NARRATIVE: CASE EVENT DATE: 20171019
